FAERS Safety Report 5104887-9 (Version None)
Quarter: 2006Q3

REPORT INFORMATION
  Report Type: 
  Country: None (occurrence: None)
  Receive Date: 20060914
  Receipt Date: 20060904
  Transmission Date: 20061208
  Serious: Yes (Other)
  Sender: FDA-Public Use
  Company Number: 2006UW17454

PATIENT
  Age: 61 Year
  Sex: Female
  Weight: 77.1 kg

DRUGS (4)
  1. ARIMIDEX [Suspect]
     Indication: BREAST CANCER FEMALE
     Route: 048
     Dates: start: 20060101
  2. EFFEXOR [Concomitant]
  3. CLONIDINE [Concomitant]
  4. NEURONTIN [Concomitant]

REACTIONS (2)
  - MASS [None]
  - WEIGHT INCREASED [None]
